FAERS Safety Report 18794924 (Version 1)
Quarter: 2021Q1

REPORT INFORMATION
  Report Type: Spontaneous
  Country: US (occurrence: US)
  Receive Date: 20210127
  Receipt Date: 20210127
  Transmission Date: 20210419
  Serious: Yes (Hospitalization)
  Sender: FDA-Public Use
  Company Number: None

PATIENT
  Age: 73 Year
  Sex: Female

DRUGS (5)
  1. DOXYCYC MONO [Concomitant]
     Active Substance: DOXYCYCLINE
  2. CEPHALEXIN. [Concomitant]
     Active Substance: CEPHALEXIN
  3. DULOXETINE. [Concomitant]
     Active Substance: DULOXETINE
  4. COSENTYX [Suspect]
     Active Substance: SECUKINUMAB
     Indication: PSORIASIS
     Dosage: ?          OTHER FREQUENCY:EVERY 4 WEEKS;?
     Route: 058
     Dates: start: 20180629
  5. CLOPIDOGREL [Concomitant]
     Active Substance: CLOPIDOGREL BISULFATE

REACTIONS (4)
  - Localised infection [None]
  - Bacterial infection [None]
  - Therapy interrupted [None]
  - Cellulitis [None]

NARRATIVE: CASE EVENT DATE: 20200309
